FAERS Safety Report 4856242-4 (Version None)
Quarter: 2005Q4

REPORT INFORMATION
  Report Type: 
  Country: None (occurrence: None)
  Receive Date: 20051214
  Receipt Date: 20051214
  Transmission Date: 20060501
  Serious: Yes (Other)
  Sender: FDA-Public Use
  Company Number: None

PATIENT
  Sex: Male

DRUGS (5)
  1. COMBIVENT [Suspect]
     Indication: RESPIRATORY DISORDER
     Dosage: AS NEEDED
  2. TOPROL-XL [Concomitant]
  3. PRILOSEC [Concomitant]
  4. UROXATRAL [Concomitant]
  5. GABAPENTIN [Concomitant]

REACTIONS (2)
  - DEVICE MALFUNCTION [None]
  - DRUG INEFFECTIVE [None]
